FAERS Safety Report 16728048 (Version 2)
Quarter: 2019Q3

REPORT INFORMATION
  Report Type: Spontaneous
  Country: IT (occurrence: IT)
  Receive Date: 20190822
  Receipt Date: 20190829
  Transmission Date: 20191005
  Serious: Yes (Hospitalization, Other)
  Sender: FDA-Public Use
  Company Number: IT-AUROBINDO-AUR-APL-2019-053206

PATIENT

DRUGS (6)
  1. PANTOPRAZOLE [Concomitant]
     Active Substance: PANTOPRAZOLE
     Indication: PRODUCT USED FOR UNKNOWN INDICATION
     Dosage: UNK
     Route: 065
  2. LANTUS [Concomitant]
     Active Substance: INSULIN GLARGINE
     Indication: PRODUCT USED FOR UNKNOWN INDICATION
     Dosage: UNK
     Route: 065
  3. MEROPENEM AUROBINDO1000 MG POWDER FOR SOLUTION FORINJECTION ORINFUSION [Suspect]
     Active Substance: MEROPENEM
     Indication: POSTOPERATIVE WOUND INFECTION
     Dosage: 3 DOSAGE FORM, DAILY
     Route: 042
     Dates: start: 20190711, end: 20190727
  4. INFECTOFOS [Suspect]
     Active Substance: FOSFOMYCIN SODIUM
     Indication: POSTOPERATIVE WOUND INFECTION
     Dosage: 3 DOSAGE FORM, DAILY
     Route: 042
     Dates: start: 20190711, end: 20190727
  5. CUBICIN [Suspect]
     Active Substance: DAPTOMYCIN
     Indication: POSTOPERATIVE WOUND INFECTION
     Dosage: 1 DOSAGE FORM, DAILY
     Route: 065
     Dates: start: 20190711, end: 20190727
  6. APIDRA [Concomitant]
     Active Substance: INSULIN GLULISINE
     Indication: PRODUCT USED FOR UNKNOWN INDICATION
     Dosage: UNK
     Route: 065

REACTIONS (2)
  - Pathogen resistance [Not Recovered/Not Resolved]
  - Bacterial infection [Not Recovered/Not Resolved]

NARRATIVE: CASE EVENT DATE: 20190727
